FAERS Safety Report 7681018-2 (Version None)
Quarter: 2011Q3

REPORT INFORMATION
  Report Type: 
  Country: None (occurrence: None)
  Receive Date: 20110812
  Receipt Date: 20110802
  Transmission Date: 20111222
  Serious: Yes (Hospitalization)
  Sender: FDA-Public Use
  Company Number: US-JNJFOC-20110800322

PATIENT
  Sex: Male
  Weight: 45.1 kg

DRUGS (22)
  1. BENZACLIN [Concomitant]
  2. LEVOTHYROXINE SODIUM [Concomitant]
  3. MULTIVITAMIN WITH MINERALS [Concomitant]
  4. IBUPROFEN [Concomitant]
  5. ANTIBIOTICS [Concomitant]
     Indication: INFLAMMATORY BOWEL DISEASE
  6. PROBIOTICS [Concomitant]
  7. FOLIC ACID [Concomitant]
  8. REMICADE [Suspect]
     Indication: INFLAMMATORY BOWEL DISEASE
     Dosage: STARTED
     Route: 042
     Dates: start: 20090706
  9. HUMIRA [Concomitant]
     Indication: INFLAMMATORY BOWEL DISEASE
     Dates: start: 20091015
  10. BENZOYL PEROXIDE [Concomitant]
  11. GROWTH HORMONE [Concomitant]
  12. HUMIRA [Concomitant]
     Dosage: STARTED
     Dates: start: 20090821
  13. ACETAMINOPHEN [Concomitant]
  14. CALCIUM 600 AND VITAMIN D [Concomitant]
  15. METHOTREXATE [Concomitant]
     Dosage: 7.5-12.5 MG/WEEK
  16. DAPSONE [Concomitant]
  17. REMICADE [Suspect]
     Route: 042
     Dates: start: 20090723, end: 20090817
  18. ASCORBIC ACID [Concomitant]
  19. CHOLECALCIFEROL [Concomitant]
  20. ADAPALENE [Concomitant]
  21. LETROZOLE [Concomitant]
  22. PRILOSEC [Concomitant]

REACTIONS (1)
  - SPASTIC DIPLEGIA [None]
